FAERS Safety Report 9369117 (Version 35)
Quarter: 2018Q3

REPORT INFORMATION
  Report Type: Report from Study
  Country: CA (occurrence: CA)
  Receive Date: 20130626
  Receipt Date: 20180904
  Transmission Date: 20181010
  Serious: Yes (Hospitalization, Other)
  Sender: FDA-Public Use
  Company Number: PHHY2012CA081160

PATIENT
  Age: 81 Year
  Sex: Male

DRUGS (5)
  1. SANDOSTATIN LAR DEPOT [Suspect]
     Active Substance: OCTREOTIDE ACETATE
     Indication: CARCINOID TUMOUR
     Dosage: 30 MG, QMO (EVERY 4 WEEKS)
     Route: 030
     Dates: start: 20120627
  2. SANDOSTATIN [Suspect]
     Active Substance: OCTREOTIDE ACETATE
     Indication: NEUROENDOCRINE TUMOUR
     Dosage: UNK UNK, ONCE/SINGLE
     Route: 058
     Dates: start: 20120619, end: 20120619
  3. SANDOSTATIN LAR DEPOT [Suspect]
     Active Substance: OCTREOTIDE ACETATE
     Indication: NEUROENDOCRINE TUMOUR
     Dosage: 20 MG, QMO (EVERY 4 WEEKS)
     Route: 030
  4. SENOKOT [Concomitant]
     Active Substance: SENNOSIDES
     Indication: PRODUCT USED FOR UNKNOWN INDICATION
     Dosage: 8.6 MG, QD
     Route: 065
  5. ALLOPURINOL. [Concomitant]
     Active Substance: ALLOPURINOL
     Indication: PROPHYLAXIS
     Dosage: 20 MG AT BEDTIME
     Route: 065

REACTIONS (44)
  - Headache [Recovered/Resolved]
  - Dizziness [Unknown]
  - Oedema [Recovering/Resolving]
  - Peripheral swelling [Unknown]
  - Fatigue [Recovering/Resolving]
  - Nausea [Unknown]
  - Blood pressure systolic increased [Unknown]
  - Arthritis [Unknown]
  - Chest pain [Not Recovered/Not Resolved]
  - Nasopharyngitis [Not Recovered/Not Resolved]
  - Malaise [Unknown]
  - Diarrhoea [Unknown]
  - Thyroid disorder [Unknown]
  - Anxiety [Unknown]
  - Headache [Unknown]
  - Joint injury [Unknown]
  - Vomiting [Unknown]
  - Postoperative wound infection [Unknown]
  - Sciatica [Unknown]
  - Pain in extremity [Unknown]
  - Injection site pain [Recovered/Resolved]
  - Rales [Unknown]
  - Infection [Unknown]
  - Intervertebral disc disorder [Unknown]
  - Back pain [Unknown]
  - Body temperature decreased [Unknown]
  - Abdominal pain upper [Unknown]
  - Blood pressure increased [Unknown]
  - Ligament sprain [Unknown]
  - Influenza like illness [Recovering/Resolving]
  - Carpal tunnel syndrome [Unknown]
  - Heart rate decreased [Unknown]
  - Intestinal obstruction [Unknown]
  - Infrequent bowel movements [Unknown]
  - Hepatic cancer [Unknown]
  - Recurrent cancer [Unknown]
  - Balance disorder [Unknown]
  - Gait disturbance [Unknown]
  - Flatulence [Unknown]
  - Pain [Recovered/Resolved]
  - Obstructive airways disorder [Unknown]
  - Needle issue [Unknown]
  - Arthralgia [Unknown]
  - Asthenia [Unknown]

NARRATIVE: CASE EVENT DATE: 2014
